FAERS Safety Report 21129684 (Version 6)
Quarter: 2024Q3

REPORT INFORMATION
  Report Type: Spontaneous
  Country: US (occurrence: US)
  Receive Date: 20220726
  Receipt Date: 20240710
  Transmission Date: 20241017
  Serious: No
  Sender: GLAXOSMITHKLINE
  Company Number: US-GSK-US2022AMR109339

PATIENT
  Sex: Female

DRUGS (15)
  1. BENLYSTA [Suspect]
     Active Substance: BELIMUMAB
     Indication: Systemic lupus erythematosus
     Dosage: 200 MG/ML, WE
     Route: 058
  2. BENLYSTA [Suspect]
     Active Substance: BELIMUMAB
     Indication: Systemic lupus erythematosus
     Dosage: 200 MG/ML, WE
  3. BENLYSTA [Suspect]
     Active Substance: BELIMUMAB
  4. BENLYSTA [Suspect]
     Active Substance: BELIMUMAB
     Indication: Systemic lupus erythematosus
     Dosage: 200 MG, WE
     Route: 058
  5. BENLYSTA [Suspect]
     Active Substance: BELIMUMAB
  6. BENLYSTA [Suspect]
     Active Substance: BELIMUMAB
  7. BENLYSTA [Suspect]
     Active Substance: BELIMUMAB
     Indication: Systemic lupus erythematosus
     Dosage: 200 MG, WE
     Route: 058
  8. BENLYSTA [Suspect]
     Active Substance: BELIMUMAB
  9. BENLYSTA [Suspect]
     Active Substance: BELIMUMAB
  10. BENLYSTA [Suspect]
     Active Substance: BELIMUMAB
  11. BENLYSTA [Suspect]
     Active Substance: BELIMUMAB
     Indication: Systemic lupus erythematosus
     Dosage: 200 MG/ML, WE
     Route: 058
  12. BENLYSTA [Suspect]
     Active Substance: BELIMUMAB
  13. BENLYSTA [Suspect]
     Active Substance: BELIMUMAB
  14. BENLYSTA [Suspect]
     Active Substance: BELIMUMAB
  15. BENLYSTA [Suspect]
     Active Substance: BELIMUMAB

REACTIONS (15)
  - Condition aggravated [Unknown]
  - Pain [Unknown]
  - Headache [Unknown]
  - Emotional distress [Unknown]
  - Crying [Unknown]
  - Illness [Unknown]
  - Back pain [Unknown]
  - Pain in extremity [Unknown]
  - Arthralgia [Unknown]
  - White blood cell count increased [Unknown]
  - Heavy menstrual bleeding [Unknown]
  - Haemorrhagic disorder [Unknown]
  - Product storage error [Unknown]
  - Product administration error [Unknown]
  - Exposure during pregnancy [Unknown]
